FAERS Safety Report 25363180 (Version 1)
Quarter: 2025Q2

REPORT INFORMATION
  Report Type: Spontaneous
  Country: US (occurrence: None)
  Receive Date: 20250527
  Receipt Date: 20250527
  Transmission Date: 20250717
  Serious: No
  Sender: INCYTE
  Company Number: US-INCYTE CORPORATION-2025IN005434

PATIENT
  Age: 78 Year

DRUGS (2)
  1. JAKAFI [Suspect]
     Active Substance: RUXOLITINIB
     Indication: Marrow hyperplasia
     Route: 065
  2. JAKAFI [Suspect]
     Active Substance: RUXOLITINIB
     Indication: Myelofibrosis

REACTIONS (5)
  - Fatigue [Unknown]
  - Platelet count decreased [Unknown]
  - Haemoglobin abnormal [Unknown]
  - Drug ineffective for unapproved indication [Unknown]
  - Off label use [Unknown]
